FAERS Safety Report 4736567-3 (Version None)
Quarter: 2005Q3

REPORT INFORMATION
  Report Type: 
  Country: None (occurrence: None)
  Receive Date: 20050805
  Receipt Date: 20050805
  Transmission Date: 20060218
  Serious: Yes (Life-Threatening, Hospitalization)
  Sender: FDA-Public Use
  Company Number: None

PATIENT
  Age: 19 Year
  Sex: Female
  Weight: 43.0917 kg

DRUGS (2)
  1. WELLBUTRIN [Suspect]
     Indication: DEPRESSION
     Dosage: ONCE DAILY
     Dates: start: 20050201, end: 20050804
  2. WELLBUTRIN [Suspect]
     Indication: DEPRESSION
     Dosage: ONCE DAILY
     Dates: start: 20050201, end: 20050804

REACTIONS (3)
  - CONVULSION [None]
  - HEADACHE [None]
  - VOMITING [None]
